FAERS Safety Report 9611042 (Version 3)
Quarter: 2015Q1

REPORT INFORMATION
  Report Type: Spontaneous
  Country: US (occurrence: US)
  Receive Date: 20131009
  Receipt Date: 20150121
  Transmission Date: 20150721
  Serious: Yes (Death, Life-Threatening, Hospitalization, Other)
  Sender: FDA-Public Use
  Company Number: US-009507513-1310USA004262

PATIENT
  Sex: Male
  Weight: 74.83 kg

DRUGS (4)
  1. JANUVIA [Suspect]
     Active Substance: SITAGLIPTIN PHOSPHATE
     Indication: TYPE 2 DIABETES MELLITUS
     Dosage: 100 MG, QD
     Route: 048
     Dates: start: 20071112, end: 20100705
  2. JANUVIA [Suspect]
     Active Substance: SITAGLIPTIN PHOSPHATE
     Dosage: 25 MG, QD
     Route: 048
     Dates: start: 20101208, end: 20110107
  3. JANUVIA [Suspect]
     Active Substance: SITAGLIPTIN PHOSPHATE
     Dosage: 50 MG, QD
     Route: 048
     Dates: start: 20110120, end: 20111009
  4. GLIPIZIDE. [Concomitant]
     Active Substance: GLIPIZIDE
     Indication: TYPE 2 DIABETES MELLITUS
     Dosage: 10 MG, BID

REACTIONS (34)
  - Gastroenterostomy [Unknown]
  - Pneumonia aspiration [Unknown]
  - Transurethral prostatectomy [Unknown]
  - Cardiac failure congestive [Unknown]
  - Atelectasis [Unknown]
  - Anaemia [Unknown]
  - Cholelithiasis [Unknown]
  - Acute respiratory failure [Unknown]
  - Sepsis syndrome [Unknown]
  - Bladder cancer [Unknown]
  - Bronchial secretion retention [Unknown]
  - Nephrectomy [Unknown]
  - Impaired gastric emptying [Unknown]
  - Diabetic nephropathy [Not Recovered/Not Resolved]
  - Cholecystectomy [Unknown]
  - Renal cell carcinoma [Unknown]
  - Pancreatitis [Unknown]
  - Pancreatic pseudocyst [Unknown]
  - Postoperative ileus [Unknown]
  - Nephrosclerosis [Not Recovered/Not Resolved]
  - Adenocarcinoma pancreas [Fatal]
  - Aspiration [Unknown]
  - Chronic kidney disease [Not Recovered/Not Resolved]
  - Bladder operation [Unknown]
  - Pancreatic cyst [Unknown]
  - Atrioventricular block first degree [Unknown]
  - Leukocytosis [Unknown]
  - Hypoacusis [Unknown]
  - Surgery [Unknown]
  - Acute kidney injury [Unknown]
  - Benign prostatic hyperplasia [Unknown]
  - Patella fracture [Unknown]
  - Knee operation [Unknown]
  - Bundle branch block right [Unknown]

NARRATIVE: CASE EVENT DATE: 2010
